FAERS Safety Report 21003816 (Version 4)
Quarter: 2022Q4

REPORT INFORMATION
  Report Type: Spontaneous
  Country: US (occurrence: US)
  Receive Date: 20220624
  Receipt Date: 20221110
  Transmission Date: 20230113
  Serious: No
  Sender: FDA-Public Use
  Company Number: US-BIOGEN-2022BI01134460

PATIENT
  Age: 78 Year
  Sex: Female

DRUGS (3)
  1. TYSABRI [Suspect]
     Active Substance: NATALIZUMAB
     Indication: Multiple sclerosis
     Route: 050
     Dates: start: 20200217
  2. TYSABRI [Suspect]
     Active Substance: NATALIZUMAB
     Route: 050
  3. TYSABRI [Suspect]
     Active Substance: NATALIZUMAB
     Route: 050

REACTIONS (6)
  - Prescribed underdose [Unknown]
  - Gait inability [Not Recovered/Not Resolved]
  - Progressive multiple sclerosis [Not Recovered/Not Resolved]
  - Fall [Recovered/Resolved]
  - Headache [Unknown]
  - Peripheral swelling [Unknown]

NARRATIVE: CASE EVENT DATE: 20220601
